FAERS Safety Report 8354303-9 (Version None)
Quarter: 2012Q2

REPORT INFORMATION
  Report Type: 
  Country: None (occurrence: None)
  Receive Date: 20120511
  Receipt Date: 20120504
  Transmission Date: 20120825
  Serious: Yes (Hospitalization)
  Sender: FDA-Public Use
  Company Number: US-BAYER-2012-000034

PATIENT
  Age: 34 Year
  Sex: Female
  Weight: 63.492 kg

DRUGS (12)
  1. SINGULAIR [Concomitant]
     Dosage: 10 MG, HS
     Route: 048
     Dates: start: 20091113
  2. YAZ [Suspect]
     Dates: start: 20070601, end: 20091101
  3. ZOFRAN [Concomitant]
     Dosage: 4 MG, QID PRN
     Route: 048
     Dates: start: 20091113
  4. DIFLUCAN [Concomitant]
     Dosage: 100 MG, QD
     Route: 048
     Dates: start: 20091113
  5. POTASSIUM CITRATE [Concomitant]
     Dosage: 10 MEQ, QD
     Route: 048
     Dates: start: 20091113
  6. TETRACYCLINE [Concomitant]
     Dosage: 250 MG, QID
     Route: 048
     Dates: start: 20091113
  7. XOPENEX [Concomitant]
     Dosage: 45 ?G, QID PRN
     Route: 045
     Dates: start: 20091113
  8. VITAMIN B12 [Concomitant]
     Dosage: UNK UNK, Q1MON
     Route: 030
     Dates: start: 20091113
  9. ALLEGRA [Concomitant]
     Dosage: 180 MG,QD
     Route: 048
     Dates: start: 20091113
  10. ACIPHEX [Concomitant]
     Dosage: 20 MG, BID
     Route: 048
     Dates: start: 20091113
  11. FROVA [Concomitant]
     Dosage: 2.5 MG, PRN
     Route: 048
     Dates: start: 20091113
  12. YASMIN [Suspect]
     Dates: start: 20070601, end: 20091101

REACTIONS (2)
  - THROMBOSIS [None]
  - THROMBOPHLEBITIS SUPERFICIAL [None]
